FAERS Safety Report 21130719 (Version 8)
Quarter: 2025Q1

REPORT INFORMATION
  Report Type: Report from Study
  Country: IN (occurrence: IN)
  Receive Date: 20220726
  Receipt Date: 20250122
  Transmission Date: 20250409
  Serious: Yes (Other)
  Sender: TAKEDA
  Company Number: IN-TAKEDA-2022TUS045448

PATIENT
  Sex: Female

DRUGS (6)
  1. VEDOLIZUMAB [Suspect]
     Active Substance: VEDOLIZUMAB
     Indication: Colitis ulcerative
  2. MIRTAZAPINE [Concomitant]
     Active Substance: MIRTAZAPINE
  3. ESCITALOPRAM [Concomitant]
     Active Substance: ESCITALOPRAM OXALATE
  4. CLONAZEPAM [Concomitant]
     Active Substance: CLONAZEPAM
  5. ALPRAZOLAM [Concomitant]
     Active Substance: ALPRAZOLAM
  6. A-HYDROCORT [Concomitant]
     Active Substance: HYDROCORTISONE SODIUM SUCCINATE

REACTIONS (7)
  - Haematochezia [Unknown]
  - Mucous stools [Recovered/Resolved]
  - Weight increased [Unknown]
  - Stress [Recovered/Resolved]
  - Frequent bowel movements [Unknown]
  - Abdominal distension [Unknown]
  - Inappropriate schedule of product administration [Unknown]
